FAERS Safety Report 9177465 (Version 1)
Quarter: 2013Q1

REPORT INFORMATION
  Report Type: Spontaneous
  Country: GB (occurrence: None)
  Receive Date: 20130319
  Receipt Date: 20130319
  Transmission Date: 20140127
  Serious: Yes (Other)
  Sender: FDA-Public Use
  Company Number: 2013-04817

PATIENT
  Age: 56 Year
  Sex: Female

DRUGS (5)
  1. DIAZEPAM (WATSON LABORATORIES) (DIAZEPAM) UNK, UNKUNK [Suspect]
     Indication: PRODUCT USED FOR UNKNOWN INDICATION
     Dosage: 2 DF, DAILY, UNKNOWN
  2. TRIFLUOPERAZINE ( TRIFLUOPERAZINE) [Suspect]
     Indication: PSYCHOTIC DISORDER
     Dosage: 2.5 ML, DAILY, ORAL
     Route: 048
  3. TRANYLCYPROMINE (TRANYLCYPROMINE) [Concomitant]
  4. PROPRANOLOL (PROPRANOLOL) [Concomitant]
  5. SIMVASTATIN (SIMVASTATIN) [Suspect]

REACTIONS (6)
  - Anxiety [None]
  - Restlessness [None]
  - Dizziness [None]
  - Feeling abnormal [None]
  - Gait disturbance [None]
  - Product quality issue [None]
